FAERS Safety Report 23052531 (Version 1)
Quarter: 2023Q4

REPORT INFORMATION
  Report Type: Other
  Country: JP (occurrence: JP)
  Receive Date: 20231011
  Receipt Date: 20231011
  Transmission Date: 20240110
  Serious: Yes (Disabling)
  Sender: FDA-Public Use
  Company Number: JP-DEXPHARM-20232447

PATIENT
  Age: 18 Year
  Sex: Female

DRUGS (11)
  1. VENLAFAXINE [Suspect]
     Active Substance: VENLAFAXINE HYDROCHLORIDE
  2. QUETIAPINE [Suspect]
     Active Substance: QUETIAPINE
     Route: 048
  3. OLANZAPINE [Suspect]
     Active Substance: OLANZAPINE
     Route: 048
  4. RISPERIDONE [Suspect]
     Active Substance: RISPERIDONE
     Route: 048
  5. ESCITALOPRAM [Suspect]
     Active Substance: ESCITALOPRAM OXALATE
     Route: 048
  6. TRAZODONE [Suspect]
     Active Substance: TRAZODONE HYDROCHLORIDE
     Route: 048
  7. NITRAZEPAM [Suspect]
     Active Substance: NITRAZEPAM
     Route: 048
  8. NITRAZEPAM [Suspect]
     Active Substance: NITRAZEPAM
     Route: 048
  9. BIPERIDEN [Concomitant]
     Active Substance: BIPERIDEN
     Route: 048
  10. LUBIPROSTONE [Concomitant]
     Active Substance: LUBIPROSTONE
     Route: 048
  11. SENNOSIDES [Concomitant]
     Active Substance: SENNOSIDES
     Route: 048

REACTIONS (1)
  - Malocclusion [Not Recovered/Not Resolved]
